FAERS Safety Report 4500560-6 (Version None)
Quarter: 2004Q4

REPORT INFORMATION
  Report Type: 
  Country: None (occurrence: None)
  Receive Date: 20041115
  Receipt Date: 20041104
  Transmission Date: 20050328
  Serious: Yes (Death)
  Sender: FDA-Public Use
  Company Number: US-JNJFOC-20041101905

PATIENT
  Sex: Male

DRUGS (4)
  1. REOPRO [Suspect]
     Route: 042
  2. ASPIRIN [Concomitant]
  3. HEPARIN [Concomitant]
  4. PLAVIX [Concomitant]

REACTIONS (2)
  - HYPOTENSION [None]
  - VENTRICLE RUPTURE [None]
